FAERS Safety Report 6422134-2 (Version None)
Quarter: 2009Q4

REPORT INFORMATION
  Report Type: 
  Country: None (occurrence: None)
  Receive Date: 20091030
  Receipt Date: 20091028
  Transmission Date: 20100525
  Serious: Yes (Other)
  Sender: FDA-Public Use
  Company Number: ZA-JNJFOC-20091008828

PATIENT
  Age: 2 Year
  Sex: Male

DRUGS (7)
  1. ACETAMINOPHEN [Suspect]
     Route: 065
  2. ACETAMINOPHEN [Suspect]
     Indication: UPPER RESPIRATORY TRACT INFECTION
     Route: 065
  3. DIPHENHYDRAMINE [Suspect]
  4. DIPHENHYDRAMINE [Suspect]
     Indication: UPPER RESPIRATORY TRACT INFECTION
  5. COTRIM [Suspect]
     Indication: UPPER RESPIRATORY TRACT INFECTION
  6. MULTI-VITAMINS [Suspect]
     Indication: DRUG USE FOR UNKNOWN INDICATION
  7. CODEINE [Suspect]
     Indication: DRUG USE FOR UNKNOWN INDICATION

REACTIONS (1)
  - DRUG ERUPTION [None]
